FAERS Safety Report 15587392 (Version 2)
Quarter: 2018Q4

REPORT INFORMATION
  Report Type: Spontaneous
  Country: US (occurrence: US)
  Receive Date: 20181105
  Receipt Date: 20181112
  Transmission Date: 20190205
  Serious: Yes (Hospitalization)
  Sender: FDA-Public Use
  Company Number: US-JNJFOC-20181039120

PATIENT
  Age: 20 Year
  Sex: Male
  Weight: 79.38 kg

DRUGS (1)
  1. INVEGA TRINZA [Suspect]
     Active Substance: PALIPERIDONE PALMITATE
     Indication: SCHIZOPHRENIA
     Route: 030
     Dates: start: 201803, end: 20180927

REACTIONS (6)
  - Drug ineffective [Unknown]
  - Suicidal ideation [Recovering/Resolving]
  - Drug screen positive [Unknown]
  - Schizophrenia [Recovering/Resolving]
  - Product dose omission [Unknown]
  - Homicidal ideation [Recovering/Resolving]

NARRATIVE: CASE EVENT DATE: 2018
